FAERS Safety Report 5452328-4 (Version None)
Quarter: 2007Q3

REPORT INFORMATION
  Report Type: 
  Country: None (occurrence: None)
  Receive Date: 20070914
  Receipt Date: 20070910
  Transmission Date: 20080115
  Serious: Yes (Life-Threatening, Hospitalization)
  Sender: FDA-Public Use
  Company Number: FR-JNJFOC-20070901505

PATIENT
  Age: 50 Year
  Sex: Male

DRUGS (19)
  1. OFLOCET [Suspect]
     Route: 048
  2. OFLOCET [Suspect]
     Indication: WOUND INFECTION
     Route: 048
  3. BACTRIM DS [Suspect]
     Indication: WOUND INFECTION
     Route: 048
  4. BRISTOPEN [Suspect]
     Route: 048
  5. BRISTOPEN [Suspect]
     Indication: WOUND INFECTION
     Route: 048
  6. KARDEGIC [Concomitant]
     Route: 065
  7. MOPRAL [Concomitant]
     Route: 065
  8. NOZINAN [Concomitant]
     Route: 065
  9. TRAMADOL HCL [Concomitant]
     Route: 065
  10. DEXERYL [Concomitant]
     Route: 065
  11. AMYCOR [Concomitant]
     Route: 065
  12. NOVOMIX [Concomitant]
     Route: 065
  13. NOVONORM [Concomitant]
     Route: 065
  14. FRAXIPARINE [Concomitant]
     Route: 065
  15. FUNGIZONE [Concomitant]
     Route: 065
  16. PEVARYL [Concomitant]
     Route: 065
  17. NEXIUM [Concomitant]
     Route: 065
  18. ATORVASTATIN CALCIUM [Concomitant]
     Route: 065
  19. FOLINATE CALCIUM [Concomitant]
     Route: 065

REACTIONS (3)
  - FOLATE DEFICIENCY [None]
  - PANCYTOPENIA [None]
  - RENAL FAILURE [None]
